FAERS Safety Report 7698803-3 (Version None)
Quarter: 2011Q3

REPORT INFORMATION
  Report Type: 
  Country: None (occurrence: None)
  Receive Date: 20110819
  Receipt Date: 20110810
  Transmission Date: 20111222
  Serious: Yes (Other)
  Sender: FDA-Public Use
  Company Number: US-PURDUE-USA-2011-0073639

PATIENT
  Sex: Male

DRUGS (1)
  1. BUTRANS [Suspect]
     Indication: PAIN
     Dosage: 10 MCG/HR, DAILY

REACTIONS (3)
  - PNEUMOTHORAX [None]
  - MALIGNANT PLEURAL EFFUSION [None]
  - FEELING ABNORMAL [None]
